FAERS Safety Report 8618027-2 (Version None)
Quarter: 2012Q3

REPORT INFORMATION
  Report Type: 
  Country: None (occurrence: None)
  Receive Date: 20120824
  Receipt Date: 20120312
  Transmission Date: 20120928
  Serious: No
  Sender: FDA-Public Use
  Company Number: US-ASTRAZENECA-2012SE07274

PATIENT
  Age: 59 Year
  Sex: Female

DRUGS (6)
  1. ZOLOFT [Concomitant]
  2. ZANTAC [Concomitant]
  3. ROPINIROLE [Concomitant]
  4. SPIRIVA [Concomitant]
  5. OXYGEN [Concomitant]
     Dosage: 2 LITER AT NIGTH OR WHEN SLEEPING
  6. SYMBICORT [Suspect]
     Dosage: UNKNOWN STRENGTH AND FREQUENCY
     Route: 055

REACTIONS (2)
  - INTENTIONAL DRUG MISUSE [None]
  - DYSPNOEA [None]
